FAERS Safety Report 22001685 (Version 4)
Quarter: 2023Q2

REPORT INFORMATION
  Report Type: Spontaneous
  Country: CA (occurrence: CA)
  Receive Date: 20230216
  Receipt Date: 20230410
  Transmission Date: 20230721
  Serious: Yes (Other)
  Sender: FDA-Public Use
  Company Number: CA-PFIZER INC-2018154278

PATIENT
  Age: 3 Year
  Sex: Female

DRUGS (10)
  1. SOMATROPIN [Suspect]
     Active Substance: SOMATROPIN
     Dosage: 0.7 MG, (6 TIMES PER WEEK)
     Route: 058
     Dates: start: 20160801
  2. SOMATROPIN [Suspect]
     Active Substance: SOMATROPIN
     Dosage: 0.8 MG, (6 TIMES PER WEEK)
     Route: 058
     Dates: start: 2018
  3. SOMATROPIN [Suspect]
     Active Substance: SOMATROPIN
     Dosage: 1200 UG, DAILY 5.3MG GOQUICK
     Route: 058
     Dates: start: 2023
  4. ATENOLOL [Concomitant]
     Active Substance: ATENOLOL
     Dosage: 3.5 ML, 2X/DAY
  5. MCT OIL [Concomitant]
     Dosage: UNK
  6. LEVOCARNITINE [Concomitant]
     Active Substance: LEVOCARNITINE
     Dosage: 5 ML, UNK
  7. VALPROIC ACID [Concomitant]
     Active Substance: VALPROIC ACID
     Dosage: 6.5 ML, DAILY (2.5ML IN THE MORNING, 4ML AT BEDTIME)
  8. VALPROIC ACID [Concomitant]
     Active Substance: VALPROIC ACID
     Dosage: 2.5ML IN THE MORNING, 4ML AT BEDTIME
     Route: 065
  9. NADOLOL [Concomitant]
     Active Substance: NADOLOL
     Dosage: 20 MG, DAILY
     Route: 065
  10. HUMATROPE [Concomitant]
     Active Substance: SOMATROPIN
     Dosage: 1.2 MG, DAILY, 1 DF
     Route: 058

REACTIONS (4)
  - Epilepsy [Not Recovered/Not Resolved]
  - Disease recurrence [Not Recovered/Not Resolved]
  - Insulin-like growth factor increased [Unknown]
  - Product prescribing error [Unknown]

NARRATIVE: CASE EVENT DATE: 20220401
